FAERS Safety Report 20554368 (Version 1)
Quarter: 2022Q1

REPORT INFORMATION
  Report Type: Spontaneous
  Country: US (occurrence: US)
  Receive Date: 20220304
  Receipt Date: 20220304
  Transmission Date: 20220423
  Serious: No
  Sender: FDA-Public Use
  Company Number: US-BAYER-2022A031254

PATIENT
  Age: 68 Year
  Sex: Male
  Weight: 83.9 kg

DRUGS (3)
  1. GADAVIST [Suspect]
     Active Substance: GADOBUTROL
     Indication: Magnetic resonance imaging head
     Dosage: UNK UNK, ONCE
     Route: 042
     Dates: start: 20220106, end: 20220106
  2. GABAPENTIN [Concomitant]
     Active Substance: GABAPENTIN
     Dosage: 300 MG, TID
  3. VITAMIN B [Concomitant]
     Active Substance: VITAMIN B

REACTIONS (5)
  - Flushing [Recovered/Resolved]
  - Pruritus [Recovered/Resolved]
  - Eye swelling [Recovered/Resolved]
  - Urticaria [Recovered/Resolved]
  - Hyperhidrosis [Recovered/Resolved]

NARRATIVE: CASE EVENT DATE: 20220106
